FAERS Safety Report 23617324 (Version 1)
Quarter: 2024Q1

REPORT INFORMATION
  Report Type: Spontaneous
  Country: US (occurrence: None)
  Receive Date: 20240309
  Receipt Date: 20240309
  Transmission Date: 20240409
  Serious: No
  Sender: FDA-Public Use
  Company Number: None

PATIENT
  Age: 63 Year
  Sex: Female
  Weight: 69.75 kg

DRUGS (8)
  1. VEOZAH [Suspect]
     Active Substance: FEZOLINETANT
     Indication: Menopause
     Dosage: FREQUENCY : DAILY;?
     Route: 048
     Dates: start: 20240205, end: 20240308
  2. VEOZAH [Suspect]
     Active Substance: FEZOLINETANT
     Indication: Hot flush
  3. ATENOLOL [Concomitant]
     Active Substance: ATENOLOL
  4. ATORVASTATIN [Concomitant]
     Active Substance: ATORVASTATIN
  5. OLMESARTAN [Concomitant]
  6. HYDROXYZINE HYDROCHLORIDE [Concomitant]
     Active Substance: HYDROXYZINE HYDROCHLORIDE
  7. VITAMINS [Concomitant]
     Active Substance: VITAMINS
  8. Vision vitamin [Concomitant]

REACTIONS (2)
  - Glossitis [None]
  - Swollen tongue [None]

NARRATIVE: CASE EVENT DATE: 20240227
